FAERS Safety Report 8807572 (Version 2)
Quarter: 2012Q4

REPORT INFORMATION
  Report Type: 
  Country: PE (occurrence: PE)
  Receive Date: 20120925
  Receipt Date: 20121003
  Transmission Date: 20130627
  Serious: Yes (Other)
  Sender: FDA-Public Use
  Company Number: PE-PFIZER INC-2012233789

PATIENT
  Age: 89 Year
  Sex: Female

DRUGS (1)
  1. XALATAN [Suspect]
     Indication: GLAUCOMA
     Dosage: 1.5 ug, 1x/day
     Route: 047
     Dates: start: 2009, end: 20120516

REACTIONS (1)
  - Cataract [Recovering/Resolving]
